FAERS Safety Report 6112362-8 (Version None)
Quarter: 2009Q1

REPORT INFORMATION
  Report Type: 
  Country: None (occurrence: None)
  Receive Date: 20090311
  Receipt Date: 20090311
  Transmission Date: 20090719
  Serious: Yes (Life-Threatening)
  Sender: FDA-Public Use
  Company Number: None

PATIENT
  Sex: Female
  Weight: 83.9154 kg

DRUGS (1)
  1. BACTRIM DS [Suspect]
     Indication: STAPHYLOCOCCAL INFECTION
     Dosage: 800/160 1 TABLET TWICE DAILY MOUTH
     Route: 048
     Dates: start: 20090126, end: 20090208

REACTIONS (4)
  - BLOOD PRESSURE FLUCTUATION [None]
  - DYSPHAGIA [None]
  - FATIGUE [None]
  - PULSE ABNORMAL [None]
